FAERS Safety Report 6284962-6 (Version None)
Quarter: 2009Q3

REPORT INFORMATION
  Report Type: 
  Country: None (occurrence: None)
  Receive Date: 20090727
  Receipt Date: 20090416
  Transmission Date: 20100115
  Serious: Yes (Hospitalization)
  Sender: FDA-Public Use
  Company Number: JP-JNJFOC-20090307082

PATIENT
  Sex: Male

DRUGS (16)
  1. GOLIMUMAB [Suspect]
     Dosage: RANDOMIZATION # M0300571
     Route: 058
  2. GOLIMUMAB [Suspect]
     Dosage: RANDOMIZATION # M0200015
     Route: 058
  3. GOLIMUMAB [Suspect]
     Dosage: RANDOMIZATION # M0200015
     Route: 058
  4. GOLIMUMAB [Suspect]
     Dosage: RANDOMIZATION # M0100115
     Route: 058
  5. GOLIMUMAB [Suspect]
     Dosage: RANDOMIZATION # M0100115
     Route: 058
  6. GOLIMUMAB [Suspect]
     Dosage: RANDOMIZATION # M0100115
     Route: 058
  7. GOLIMUMAB [Suspect]
     Indication: RHEUMATOID ARTHRITIS
     Dosage: RANDOMIZATION # M0100115
     Route: 058
  8. LOXONIN [Concomitant]
     Indication: RHEUMATOID ARTHRITIS
     Route: 048
  9. MUCOSTA [Concomitant]
     Indication: GASTRITIS PROPHYLAXIS
     Route: 048
  10. RHEUMATREX [Concomitant]
     Indication: RHEUMATOID ARTHRITIS
     Route: 048
  11. OLMETEC [Concomitant]
     Indication: HYPERTENSION
     Route: 048
  12. FLUITRAN [Concomitant]
     Indication: OEDEMA
     Route: 048
  13. GLYCYRON [Concomitant]
     Indication: ASPARTATE AMINOTRANSFERASE INCREASED
     Route: 048
  14. GLYCYRON [Concomitant]
     Indication: ALANINE AMINOTRANSFERASE INCREASED
     Route: 048
  15. URSO 250 [Concomitant]
     Indication: ASPARTATE AMINOTRANSFERASE INCREASED
     Route: 048
  16. URSO 250 [Concomitant]
     Indication: ALANINE AMINOTRANSFERASE INCREASED
     Route: 048

REACTIONS (1)
  - ENTEROCOLITIS [None]
